FAERS Safety Report 4899001-9 (Version None)
Quarter: 2006Q1

REPORT INFORMATION
  Report Type: 
  Country: None (occurrence: None)
  Receive Date: 20060127
  Receipt Date: 20060118
  Transmission Date: 20060701
  Serious: Yes (Other)
  Sender: FDA-Public Use
  Company Number: AZAUS200600024

PATIENT
  Age: 78 Year
  Sex: Male
  Weight: 73.1 kg

DRUGS (10)
  1. AZACITIDINE (AZACITIDINE) (INJECTION) [Suspect]
     Indication: MYELODYSPLASTIC SYNDROME
     Dosage: 75 MG/M2 (AZA 5-2-2), SUBCUTANEOUS
     Route: 058
     Dates: start: 20060109, end: 20060117
  2. BUMEX [Concomitant]
  3. KLOR-CON [Concomitant]
  4. ELIGARD [Concomitant]
  5. ANZEMET [Concomitant]
  6. ARANESP [Concomitant]
  7. CORRECTOL [Concomitant]
  8. SALEX CREAM (SALICYLIC ACID) [Concomitant]
  9. CALCIUM CARBONATE (CALCIUM CARBONATE) [Concomitant]
  10. LCD 6%/TAC 0.1%/SALICYLIC ACID 6% (GALENIC/COAL TAR/SALICYLIC ACID/) [Concomitant]

REACTIONS (3)
  - DEHYDRATION [None]
  - ENTERITIS [None]
  - VIRAL INFECTION [None]
